FAERS Safety Report 7585406-4 (Version None)
Quarter: 2011Q2

REPORT INFORMATION
  Report Type: 
  Country: None (occurrence: None)
  Receive Date: 20110624
  Receipt Date: 20110606
  Transmission Date: 20111010
  Serious: Yes (Life-Threatening)
  Sender: FDA-Public Use
  Company Number: 1419181-2011-00002

PATIENT
  Age: 78 Year
  Sex: Female

DRUGS (12)
  1. ODANSETRON [Concomitant]
  2. HYDROGEN PEROXIDE SOLUTION [Suspect]
     Dosage: 7 ML QID ORALLY
     Route: 048
     Dates: start: 20110602, end: 20110603
  3. ANTIPLAQUE SOLUTION - SAGE PRODUCTS [Suspect]
     Indication: DENTAL PLAQUE
     Dosage: 7 ML BID ORALLY
     Route: 048
     Dates: start: 20110602, end: 20110603
  4. ANTIPLAQUE SOLUTION - SAGE PRODUCTS [Suspect]
     Indication: GINGIVITIS
     Dosage: 7 ML BID ORALLY
     Route: 048
     Dates: start: 20110602, end: 20110603
  5. DOCUSATE SODIUM [Concomitant]
  6. ACETAMINOPHEN [Concomitant]
  7. OXYCODONE HCL [Concomitant]
  8. LACTATED RINGER'S [Concomitant]
  9. FAMOTADINE [Concomitant]
  10. BISACODYL [Concomitant]
  11. TETANUS IMMUNE GLOBULIN (HUMAN) [Concomitant]
  12. PROMETHAZINE [Concomitant]

REACTIONS (2)
  - SYNCOPE [None]
  - SWOLLEN TONGUE [None]
